FAERS Safety Report 14160764 (Version 2)
Quarter: 2017Q4

REPORT INFORMATION
  Report Type: Report from Study
  Country: CA (occurrence: CA)
  Receive Date: 20171106
  Receipt Date: 20171108
  Transmission Date: 20180321
  Serious: Yes (Other)
  Sender: FDA-Public Use
  Company Number: CA-JNJFOC-20171101037

PATIENT
  Age: 34 Year
  Sex: Male
  Weight: 94 kg

DRUGS (2)
  1. REMICADE [Suspect]
     Active Substance: INFLIXIMAB
     Indication: COLITIS ULCERATIVE
     Route: 042
  2. REMICADE [Suspect]
     Active Substance: INFLIXIMAB
     Indication: COLITIS ULCERATIVE
     Route: 042
     Dates: start: 20131223, end: 20171101

REACTIONS (2)
  - Precancerous cells present [Unknown]
  - Pregnancy of partner [Not Recovered/Not Resolved]

NARRATIVE: CASE EVENT DATE: 201707
